FAERS Safety Report 9737477 (Version 2)
Quarter: 2014Q1

REPORT INFORMATION
  Report Type: Report from Study
  Country: GR (occurrence: GR)
  Receive Date: 20131206
  Receipt Date: 20140326
  Transmission Date: 20141002
  Serious: Yes (Other)
  Sender: FDA-Public Use
  Company Number: GR-009507513-1312GRC001634

PATIENT
  Age: 73 Year
  Sex: Female

DRUGS (3)
  1. ALENDRONATE SODIUM [Suspect]
     Indication: OSTEOPOROSIS POSTMENOPAUSAL
     Dosage: 70 MG, QW
     Route: 048
     Dates: start: 2003, end: 2011
  2. DENOSUMAB [Suspect]
     Dosage: UNK
     Route: 058
     Dates: start: 2011
  3. VITAMIN D (UNSPECIFIED) [Concomitant]
     Dosage: UNK
     Dates: start: 2003, end: 2011

REACTIONS (2)
  - Femur fracture [Recovered/Resolved]
  - Intramedullary rod insertion [Recovered/Resolved]
